FAERS Safety Report 9110452 (Version 1)
Quarter: 2013Q1

REPORT INFORMATION
  Report Type: Spontaneous
  Country: US (occurrence: US)
  Receive Date: 20130219
  Receipt Date: 20130219
  Transmission Date: 20140127
  Serious: Yes (Hospitalization)
  Sender: FDA-Public Use
  Company Number: US-BRACCO-008427

PATIENT
  Age: 41 Year
  Sex: Female

DRUGS (6)
  1. MULTIHANCE [Concomitant]
     Indication: NUCLEAR MAGNETIC RESONANCE IMAGING
     Dates: start: 20120725, end: 20120725
  2. ISOVUE 370 [Suspect]
     Indication: TRANSIENT ISCHAEMIC ATTACK
     Dosage: LESS THAN 20 ML INFILTRATED
     Route: 042
     Dates: start: 20120725, end: 20120725
  3. ISOVUE 370 [Suspect]
     Indication: COMPUTERISED TOMOGRAM
     Dosage: 11 ML INFILTRATED
     Route: 042
     Dates: start: 20120725, end: 20120725
  4. TRAZODONE [Concomitant]
  5. ESTRADIOL [Concomitant]
  6. METOPROLOL [Concomitant]

REACTIONS (5)
  - Contrast media allergy [Unknown]
  - Extravasation [Unknown]
  - Local swelling [Recovered/Resolved]
  - Urticaria [Unknown]
  - Pruritus [Unknown]
